FAERS Safety Report 4952568-4 (Version None)
Quarter: 2006Q1

REPORT INFORMATION
  Report Type: 
  Country: None (occurrence: None)
  Receive Date: 20060317
  Receipt Date: 20060306
  Transmission Date: 20060701
  Serious: Yes (Hospitalization)
  Sender: FDA-Public Use
  Company Number: 2006033603

PATIENT
  Age: 25 Year
  Sex: Male

DRUGS (1)
  1. SULPERAZON (SULBACTAM, CEFOPERAZONE) [Suspect]
     Indication: OTORRHOEA
     Dosage: 1 GRAM, INTRAVENOUS
     Route: 042

REACTIONS (5)
  - CONJUNCTIVAL OEDEMA [None]
  - DYSPNOEA [None]
  - LACRIMATION INCREASED [None]
  - PHARYNGEAL ERYTHEMA [None]
  - SWELLING FACE [None]
